FAERS Safety Report 10026386 (Version 1)
Quarter: 2014Q1

REPORT INFORMATION
  Report Type: Spontaneous
  Country: US (occurrence: US)
  Receive Date: 20140321
  Receipt Date: 20140321
  Transmission Date: 20141002
  Serious: No
  Sender: FDA-Public Use
  Company Number: US-ALLERGAN-1401446US

PATIENT
  Sex: 0

DRUGS (2)
  1. LUMIGAN [Suspect]
     Indication: GLAUCOMA
     Route: 047
  2. ZIOPTAN [Suspect]
     Indication: GLAUCOMA
     Route: 047

REACTIONS (1)
  - Eye irritation [Unknown]
